FAERS Safety Report 9282529 (Version 1)
Quarter: 2013Q2

REPORT INFORMATION
  Report Type: Spontaneous
  Country: US (occurrence: US)
  Receive Date: 20130510
  Receipt Date: 20130510
  Transmission Date: 20140414
  Serious: Yes (Other)
  Sender: FDA-Public Use
  Company Number: US-TEVA-403897USA

PATIENT
  Sex: Male

DRUGS (3)
  1. NUVIGIL [Suspect]
     Dosage: 1.5 TABS PER DAY
     Dates: start: 2011
  2. NUVIGIL [Suspect]
     Dosage: DAILY FOR FIRST 6 MO.
     Dates: start: 2011
  3. CYMBALTA [Suspect]

REACTIONS (4)
  - Aphagia [Not Recovered/Not Resolved]
  - Dysphagia [Not Recovered/Not Resolved]
  - Oral pain [Not Recovered/Not Resolved]
  - Oral disorder [Not Recovered/Not Resolved]
